FAERS Safety Report 10170946 (Version 1)
Quarter: 2014Q2

REPORT INFORMATION
  Report Type: Spontaneous
  Country: GB (occurrence: None)
  Receive Date: 20140424
  Receipt Date: 20140424
  Transmission Date: 20141212
  Serious: Yes (Hospitalization, Other)
  Sender: FDA-Public Use
  Company Number: E2B_00001653

PATIENT
  Age: 67 Year
  Sex: Female
  Weight: 103 kg

DRUGS (9)
  1. QUETIAPINE [Suspect]
     Indication: SCHIZOPHRENIA
     Dosage: 300 MG, (150 MG, 2 IN 1 D), ORAL
     Route: 048
     Dates: start: 20140102, end: 20140107
  2. SERTRALINE [Concomitant]
  3. DIAZEPAM (UNKNOWN) (DIAZEPAM) UNK, UNKUNK [Concomitant]
  4. PRAVASTATIN (UNKNOWN) (PRAVASTATIN) [Concomitant]
  5. CODEINE PHOSPHATE +  PARACETAMOL; (CO-CODAMOL (CO-CODAMOL) (UNKNOWN) [Concomitant]
  6. IPRATOPIUM BROMIDE (UNKNOWN) [Concomitant]
  7. ACETYLSALICYLIC ACID (ASPIRIN) (UNKNOWN) [Concomitant]
  8. METFORMIN (UNKNOWN) (METFORMIN) [Concomitant]
  9. RAMIPRIL (UNKNOWN) (RAMIPRIL) [Concomitant]

REACTIONS (1)
  - Generalised tonic-clonic seizure [None]
